FAERS Safety Report 5933138-8 (Version None)
Quarter: 2008Q4

REPORT INFORMATION
  Report Type: 
  Country: None (occurrence: None)
  Receive Date: 20081028
  Receipt Date: 20081016
  Transmission Date: 20090506
  Serious: Yes (Other)
  Sender: FDA-Public Use
  Company Number: FR-SANOFI-SYNTHELABO-A02200801909

PATIENT
  Sex: Female
  Weight: 63 kg

DRUGS (3)
  1. ZOLPIDEM [Suspect]
     Indication: INSOMNIA
     Route: 048
     Dates: start: 20060701, end: 20080601
  2. ZOLPIDEM [Suspect]
     Route: 048
     Dates: end: 20080601
  3. LAMICTAL [Concomitant]
     Dosage: 225 MG
     Route: 048
     Dates: start: 20060101

REACTIONS (3)
  - CONVULSION [None]
  - DRUG INEFFECTIVE [None]
  - OVERDOSE [None]
